FAERS Safety Report 18869966 (Version 2)
Quarter: 2021Q1

REPORT INFORMATION
  Report Type: Spontaneous
  Country: US (occurrence: US)
  Receive Date: 20210210
  Receipt Date: 20210331
  Transmission Date: 20210420
  Serious: No
  Sender: FDA-Public Use
  Company Number: US-JNJFOC-20210213449

PATIENT
  Age: 81 Year
  Sex: Female
  Weight: 90.8 kg

DRUGS (1)
  1. LEVAQUIN [Suspect]
     Active Substance: LEVOFLOXACIN
     Indication: URINARY TRACT INFECTION
     Route: 065

REACTIONS (2)
  - Hypersensitivity [Unknown]
  - Micturition frequency decreased [Unknown]
